FAERS Safety Report 9060580 (Version 2)
Quarter: 2014Q2

REPORT INFORMATION
  Report Type: Report from Study
  Country: US (occurrence: US)
  Receive Date: 20130212
  Receipt Date: 20140424
  Transmission Date: 20141212
  Serious: No
  Sender: FDA-Public Use
  Company Number: US-VERTEX PHARMACEUTICALS INC.-2013-001803

PATIENT
  Age: 14 Year
  Sex: Female

DRUGS (1)
  1. VX-770 [Suspect]
     Indication: CYSTIC FIBROSIS
     Dosage: 150 MG, Q12HR
     Route: 048
     Dates: start: 20120217

REACTIONS (4)
  - Influenza [Recovered/Resolved]
  - Malaise [Unknown]
  - Hepatic enzyme increased [Recovered/Resolved]
  - Dizziness [Not Recovered/Not Resolved]
